FAERS Safety Report 4996056-8 (Version None)
Quarter: 2006Q2

REPORT INFORMATION
  Report Type: 
  Country: None (occurrence: None)
  Receive Date: 20060508
  Receipt Date: 20060202
  Transmission Date: 20061013
  Serious: Yes (Death, Hospitalization)
  Sender: FDA-Public Use
  Company Number: US-MERCK-0602USA00781

PATIENT
  Age: 56 Year
  Sex: Male
  Weight: 77 kg

DRUGS (2)
  1. VIOXX [Suspect]
     Indication: PAIN IN EXTREMITY
     Route: 048
     Dates: start: 20031204, end: 20040123
  2. KLOR-CON [Concomitant]
     Route: 065

REACTIONS (6)
  - ARTERIOSCLEROSIS CORONARY ARTERY [None]
  - CHOLELITHIASIS [None]
  - FALL [None]
  - HEAD INJURY [None]
  - MYOCARDIAL INFARCTION [None]
  - NECK INJURY [None]
